FAERS Safety Report 18498583 (Version 2)
Quarter: 2021Q4

REPORT INFORMATION
  Report Type: Report from Study
  Country: FR (occurrence: FR)
  Receive Date: 20201112
  Receipt Date: 20211213
  Transmission Date: 20220303
  Serious: Yes (Hospitalization, Other)
  Sender: FDA-Public Use
  Company Number: FR-SHIRE-FR202014552

PATIENT
  Age: 60 Year
  Sex: Female
  Weight: 56 kg

DRUGS (16)
  1. TEDUGLUTIDE [Suspect]
     Active Substance: TEDUGLUTIDE
     Indication: Short-bowel syndrome
     Dosage: 0.3 MILLILITER, QD
     Route: 058
     Dates: start: 201704
  2. TEDUGLUTIDE [Suspect]
     Active Substance: TEDUGLUTIDE
     Indication: Short-bowel syndrome
     Dosage: 0.3 MILLILITER, QD
     Route: 058
     Dates: start: 201704
  3. TEDUGLUTIDE [Suspect]
     Active Substance: TEDUGLUTIDE
     Indication: Short-bowel syndrome
     Dosage: 0.3 MILLILITER, QD
     Route: 058
     Dates: start: 201704
  4. TEDUGLUTIDE [Suspect]
     Active Substance: TEDUGLUTIDE
     Indication: Short-bowel syndrome
     Dosage: 0.3 MILLILITER, QD
     Route: 058
     Dates: start: 201704
  5. TEDUGLUTIDE [Suspect]
     Active Substance: TEDUGLUTIDE
     Dosage: 3.15 MILLIGRAM, 3/WEEK
     Route: 065
     Dates: start: 20170322, end: 20180603
  6. TEDUGLUTIDE [Suspect]
     Active Substance: TEDUGLUTIDE
     Dosage: 3.15 MILLIGRAM, 3/WEEK
     Route: 065
     Dates: start: 20170322, end: 20180603
  7. TEDUGLUTIDE [Suspect]
     Active Substance: TEDUGLUTIDE
     Dosage: 3.15 MILLIGRAM, 3/WEEK
     Route: 065
     Dates: start: 20170322, end: 20180603
  8. TEDUGLUTIDE [Suspect]
     Active Substance: TEDUGLUTIDE
     Dosage: 3.15 MILLIGRAM, 3/WEEK
     Route: 065
     Dates: start: 20170322, end: 20180603
  9. TEDUGLUTIDE [Suspect]
     Active Substance: TEDUGLUTIDE
     Dosage: 3 MILLIGRAM, 3/WEEK
     Route: 065
     Dates: start: 20180604
  10. TEDUGLUTIDE [Suspect]
     Active Substance: TEDUGLUTIDE
     Dosage: 3 MILLIGRAM, 3/WEEK
     Route: 065
     Dates: start: 20180604
  11. TEDUGLUTIDE [Suspect]
     Active Substance: TEDUGLUTIDE
     Dosage: 3 MILLIGRAM, 3/WEEK
     Route: 065
     Dates: start: 20180604
  12. TEDUGLUTIDE [Suspect]
     Active Substance: TEDUGLUTIDE
     Dosage: 3 MILLIGRAM, 3/WEEK
     Route: 065
     Dates: start: 20180604
  13. FENTANYL [Concomitant]
     Active Substance: FENTANYL
     Indication: Back pain
     Dosage: 50 MICROGRAM, Q72H
     Route: 062
     Dates: start: 201904, end: 20190619
  14. FENTANYL [Concomitant]
     Active Substance: FENTANYL
     Dosage: 175 MICROGRAM, QD
     Route: 062
     Dates: start: 20190620, end: 20190622
  15. FENTANYL [Concomitant]
     Active Substance: FENTANYL
     Dosage: 175 MICROGRAM, Q72H
     Route: 062
     Dates: start: 20190623
  16. KETAMINE [Concomitant]
     Active Substance: KETAMINE
     Indication: Back pain
     Dosage: 30 MILLIGRAM, QD
     Route: 042
     Dates: start: 20190618, end: 20190619

REACTIONS (2)
  - Meningioma [Recovered/Resolved]
  - Haematoma [Recovered/Resolved]

NARRATIVE: CASE EVENT DATE: 20190401
